FAERS Safety Report 16500427 (Version 2)
Quarter: 2020Q2

REPORT INFORMATION
  Report Type: Spontaneous
  Country: US (occurrence: US)
  Receive Date: 20190701
  Receipt Date: 20200413
  Transmission Date: 20200713
  Serious: No
  Sender: FDA-Public Use
  Company Number: US-AMGEN INC.-USASP2019103173

PATIENT
  Sex: Female

DRUGS (1)
  1. AIMOVIG [Suspect]
     Active Substance: ERENUMAB-AOOE
     Indication: MIGRAINE
     Dosage: UNK
     Route: 065

REACTIONS (9)
  - Mood swings [Unknown]
  - Alopecia [Unknown]
  - Therapy non-responder [Unknown]
  - Constipation [Unknown]
  - Weight increased [Unknown]
  - Muscle spasms [Unknown]
  - Rash [Unknown]
  - Memory impairment [Unknown]
  - Gastrooesophageal reflux disease [Unknown]
